FAERS Safety Report 11832019 (Version 2)
Quarter: 2016Q1

REPORT INFORMATION
  Report Type: Spontaneous
  Country: US (occurrence: US)
  Receive Date: 20151214
  Receipt Date: 20160328
  Transmission Date: 20160525
  Serious: No
  Sender: FDA-Public Use
  Company Number: US-009507513-1511USA012636

PATIENT
  Sex: Female

DRUGS (1)
  1. BELSOMRA [Suspect]
     Active Substance: SUVOREXANT
     Indication: INSOMNIA
     Dosage: 10 MG, UNK
     Route: 048

REACTIONS (6)
  - Dyspnoea [Unknown]
  - Panic attack [Unknown]
  - Fear [Unknown]
  - Feeling abnormal [Unknown]
  - Adverse reaction [Unknown]
  - Dizziness [Unknown]
